FAERS Safety Report 8244526-1 (Version None)
Quarter: 2012Q1

REPORT INFORMATION
  Report Type: 
  Country: None (occurrence: None)
  Receive Date: 20120329
  Receipt Date: 20120323
  Transmission Date: 20120608
  Serious: Yes (Hospitalization)
  Sender: FDA-Public Use
  Company Number: DE-B.I. PHARMACEUTICALS,INC./RIDGEFIELD-2011-DE-06918DE

PATIENT
  Age: 66 Year
  Sex: Male
  Weight: 71 kg

DRUGS (13)
  1. THROMBOCOR [Concomitant]
  2. TAMSULOSIN HCL [Concomitant]
  3. FLECAINID [Concomitant]
  4. TAMSUCO [Concomitant]
  5. MAGNESIUM [Concomitant]
  6. CALCIMAGOL [Concomitant]
  7. METOPROLOL SUCCINATE [Concomitant]
  8. METOPROLOL SUCCINATE [Concomitant]
  9. BAYOTENSIN [Concomitant]
  10. PRADAXA [Suspect]
     Indication: ATRIAL FIBRILLATION
     Dosage: 300 MG
     Dates: start: 20111001
  11. THROMCARDIN [Concomitant]
  12. TAMSULOSIN HYDROCHLORIDE [Concomitant]
     Dosage: 0.4 MG
  13. VALSARTAN [Concomitant]

REACTIONS (5)
  - BLOOD PRESSURE FLUCTUATION [None]
  - ELECTROCARDIOGRAM ABNORMAL [None]
  - BLOOD PRESSURE INCREASED [None]
  - MYOCARDIAL INFARCTION [None]
  - ATRIAL FIBRILLATION [None]
